FAERS Safety Report 7553806-4 (Version None)
Quarter: 2011Q2

REPORT INFORMATION
  Report Type: 
  Country: None (occurrence: None)
  Receive Date: 20110617
  Receipt Date: 20110607
  Transmission Date: 20111010
  Serious: Yes (Hospitalization)
  Sender: FDA-Public Use
  Company Number: FR-JNJFOC-20110606722

PATIENT
  Sex: Male
  Weight: 66 kg

DRUGS (9)
  1. BACTRIM [Concomitant]
     Route: 065
  2. NOVOMIX [Concomitant]
     Route: 065
  3. CACIT D3 [Concomitant]
     Route: 065
  4. TRAMADOL HCL [Suspect]
     Indication: BACK PAIN
     Route: 048
     Dates: end: 20090801
  5. LEXOMIL [Concomitant]
     Route: 065
  6. VALACYCLOVIR HYDROCHLORIDE [Concomitant]
     Route: 065
  7. DILTIAZEM [Concomitant]
     Route: 065
  8. LEUCOVORIN CALCIUM [Concomitant]
     Route: 065
  9. MORPHINE SULFATE [Concomitant]
     Route: 065

REACTIONS (3)
  - NAUSEA [None]
  - DYSPHAGIA [None]
  - VOMITING [None]
